FAERS Safety Report 7025524-2 (Version None)
Quarter: 2010Q4

REPORT INFORMATION
  Report Type: 
  Country: None (occurrence: None)
  Receive Date: 20101003
  Receipt Date: 20100921
  Transmission Date: 20110411
  Serious: Yes (Other)
  Sender: FDA-Public Use
  Company Number: PHHY2010FR55383

PATIENT
  Sex: Female
  Weight: 78 kg

DRUGS (4)
  1. RASILEZ [Suspect]
     Indication: HYPERTENSION
     Dosage: 150 MG DAILY
     Route: 048
     Dates: start: 20100201
  2. RASILEZ [Suspect]
     Dosage: 300 MG DAILY
     Route: 048
     Dates: start: 20100331, end: 20100716
  3. EFFERALGAN [Concomitant]
     Route: 048
  4. ADVIL LIQUI-GELS [Concomitant]
     Route: 048

REACTIONS (1)
  - CHEST DISCOMFORT [None]
